FAERS Safety Report 7217664-X (Version None)
Quarter: 2011Q1

REPORT INFORMATION
  Report Type: 
  Country: None (occurrence: None)
  Receive Date: 20110110
  Receipt Date: 20110103
  Transmission Date: 20110831
  Serious: No
  Sender: FDA-Public Use
  Company Number: US-ROCHE-751640

PATIENT
  Age: 30 Month
  Sex: Female

DRUGS (1)
  1. TAMIFLU [Suspect]
     Route: 065
     Dates: start: 20101228, end: 20110101

REACTIONS (6)
  - ABNORMAL BEHAVIOUR [None]
  - DRUG DOSE OMISSION [None]
  - POOR QUALITY SLEEP [None]
  - DISTURBANCE IN SOCIAL BEHAVIOUR [None]
  - ANGER [None]
  - AGGRESSION [None]
